FAERS Safety Report 8092020-3 (Version None)
Quarter: 2012Q1

REPORT INFORMATION
  Report Type: 
  Country: None (occurrence: None)
  Receive Date: 20120129
  Receipt Date: 20111107
  Transmission Date: 20120608
  Serious: No
  Sender: FDA-Public Use
  Company Number: US-ABBOTT-11P-163-0868922-00

PATIENT
  Sex: Female
  Weight: 95.34 kg

DRUGS (5)
  1. HUMIRA [Suspect]
     Indication: CROHN'S DISEASE
     Route: 058
     Dates: start: 20111016
  2. PENTASA [Concomitant]
     Indication: CROHN'S DISEASE
  3. PREDNISONE TAB [Concomitant]
     Indication: CROHN'S DISEASE
  4. HUMIRA [Suspect]
     Route: 058
     Dates: start: 20111002, end: 20111002
  5. HUMIRA [Suspect]
     Route: 058
     Dates: start: 20110917, end: 20110917

REACTIONS (6)
  - FATIGUE [None]
  - RASH [None]
  - CONTUSION [None]
  - VASCULAR INJURY [None]
  - RASH MACULAR [None]
  - PRURITUS GENERALISED [None]
